FAERS Safety Report 8822241 (Version 1)
Quarter: 2012Q4

REPORT INFORMATION
  Report Type: 
  Country: US (occurrence: US)
  Receive Date: 20121003
  Receipt Date: 20121003
  Transmission Date: 20130627
  Serious: No
  Sender: FDA-Public Use
  Company Number: US-PFIZER INC-2012243561

PATIENT
  Age: 68 Year
  Sex: Male
  Weight: 92.97 kg

DRUGS (1)
  1. CHANTIX [Suspect]
     Indication: SMOKING CESSATION THERAPY
     Dosage: 0.5 mg, 1x/day
     Route: 048
     Dates: start: 20120930, end: 20121001

REACTIONS (2)
  - Feeling abnormal [Recovered/Resolved]
  - Anxiety [Recovered/Resolved]
